FAERS Safety Report 8402036-2 (Version None)
Quarter: 2012Q2

REPORT INFORMATION
  Report Type: 
  Country: None (occurrence: None)
  Receive Date: 20120601
  Receipt Date: 20120530
  Transmission Date: 20120825
  Serious: Yes (Death, Life-Threatening, Hospitalization, Other)
  Sender: FDA-Public Use
  Company Number: JP-BAYER-2012-054042

PATIENT
  Age: 77 Year
  Sex: Female
  Weight: 45 kg

DRUGS (9)
  1. OXINORM [Concomitant]
     Indication: PAIN
     Dosage: DAILY DOSE 5 MG
     Route: 048
  2. NEXAVAR [Suspect]
     Dosage: DAILY DOSE 200 MG
     Route: 048
     Dates: start: 20111013, end: 20111017
  3. PURSENNID [Concomitant]
     Dosage: DAILY DOSE 12 MG
     Route: 048
  4. FERROUS CITRATE [Concomitant]
     Indication: IRON DEFICIENCY ANAEMIA
     Dosage: DAILY DOSE 50 MG
     Route: 048
  5. ALDACTONE [Concomitant]
     Dosage: DAILY DOSE 50 MG
     Route: 048
  6. NEXAVAR [Suspect]
     Indication: HEPATIC NEOPLASM MALIGNANT
     Dosage: DAILY DOSE 400 MG
     Route: 048
     Dates: start: 20110830, end: 20111012
  7. LASIX [Concomitant]
     Dosage: DAILY DOSE 20 MG
     Route: 048
  8. OXYCONTIN [Concomitant]
     Dosage: DAILY DOSE 10 MG
     Route: 048
  9. MAGLAX [Concomitant]
     Dosage: DAILY DOSE 990 MG
     Route: 048

REACTIONS (5)
  - DECREASED APPETITE [None]
  - HEPATIC ENCEPHALOPATHY [None]
  - AMMONIA INCREASED [None]
  - DEHYDRATION [None]
  - HEPATIC FAILURE [None]
